FAERS Safety Report 7647790-2 (Version None)
Quarter: 2011Q3

REPORT INFORMATION
  Report Type: 
  Country: None (occurrence: None)
  Receive Date: 20110801
  Receipt Date: 20110721
  Transmission Date: 20111222
  Serious: Yes (Death, Hospitalization, Other)
  Sender: FDA-Public Use
  Company Number: ES-BAXTER-2010BH007970

PATIENT
  Age: 46 Year
  Sex: Female

DRUGS (4)
  1. PHYSIOSOL IN PLASTIC CONTAINER [Concomitant]
     Indication: PERITONEAL DIALYSIS
     Route: 033
     Dates: start: 20071018
  2. EXTRANEAL [Suspect]
     Indication: PERITONEAL DIALYSIS
     Route: 033
     Dates: start: 20071018, end: 20100105
  3. INSULIN [Concomitant]
     Indication: DIABETES MELLITUS
     Route: 065
  4. NUTRINEAL [Concomitant]
     Indication: PERITONEAL DIALYSIS
     Route: 033
     Dates: start: 20071018

REACTIONS (7)
  - HYPERTENSION [None]
  - RESPIRATORY ARREST [None]
  - HYPOGLYCAEMIC ENCEPHALOPATHY [None]
  - HYPOGLYCAEMIC COMA [None]
  - DIABETIC KETOACIDOSIS [None]
  - DEVICE INTERACTION [None]
  - GRAND MAL CONVULSION [None]
